FAERS Safety Report 9140061 (Version 2)
Quarter: 2013Q1

REPORT INFORMATION
  Report Type: Spontaneous
  Country: GB (occurrence: GB)
  Receive Date: 20130305
  Receipt Date: 20130321
  Transmission Date: 20140127
  Serious: Yes (Other)
  Sender: FDA-Public Use
  Company Number: PHHY2013GB019924

PATIENT
  Age: 24 Year
  Sex: Female

DRUGS (4)
  1. FLUOXETINE [Suspect]
     Indication: DEPRESSION
     Dosage: UNK UKN, UNK
     Route: 065
     Dates: start: 200610, end: 200710
  2. INTERFERON ALFA-2B\RIBAVIRIN [Suspect]
     Indication: HEPATITIS C
  3. SUBUTEX [Suspect]
     Indication: DRUG DEPENDENCE
     Dosage: 16 MG, QD
     Route: 048
  4. HEROIN [Concomitant]
     Dosage: UNK UKN, UNK

REACTIONS (3)
  - Abortion spontaneous [Recovered/Resolved]
  - Incorrect route of drug administration [Unknown]
  - Exposure during pregnancy [Recovered/Resolved]
